FAERS Safety Report 11330232 (Version 2)
Quarter: 2015Q4

REPORT INFORMATION
  Report Type: Spontaneous
  Country: CZ (occurrence: CZ)
  Receive Date: 20150803
  Receipt Date: 20151030
  Transmission Date: 20160304
  Serious: Yes (Other)
  Sender: FDA-Public Use
  Company Number: CZ-TEVA-581767ISR

PATIENT
  Age: 62 Year
  Sex: Male

DRUGS (3)
  1. CISPLATIN. [Suspect]
     Active Substance: CISPLATIN
     Indication: TRANSITIONAL CELL CARCINOMA
     Route: 065
  2. VINBLASTIN [Concomitant]
     Active Substance: VINBLASTINE
     Indication: TRANSITIONAL CELL CARCINOMA
  3. METHOTREXATE [Concomitant]
     Active Substance: METHOTREXATE
     Indication: TRANSITIONAL CELL CARCINOMA

REACTIONS (2)
  - Osteosarcoma [Unknown]
  - Bladder transitional cell carcinoma recurrent [Unknown]

NARRATIVE: CASE EVENT DATE: 1997
